FAERS Safety Report 11531767 (Version 1)
Quarter: 2015Q3

REPORT INFORMATION
  Report Type: Spontaneous
  Country: US (occurrence: US)
  Receive Date: 20150921
  Receipt Date: 20150921
  Transmission Date: 20151125
  Serious: Yes (Other)
  Sender: FDA-Public Use
  Company Number: US-MORTON GROVE PHARMACEUTICALS, INC.-1042146

PATIENT
  Age: 58 Year
  Sex: Male

DRUGS (7)
  1. HALDOL [Concomitant]
     Active Substance: HALOPERIDOL
  2. THORAZINE [Concomitant]
     Active Substance: CHLORPROMAZINE
  3. VALPROIC ACID. [Suspect]
     Active Substance: VALPROIC ACID
     Indication: ELECTROLYTE IMBALANCE
     Dates: start: 1972, end: 2000
  4. PAXIL [Concomitant]
     Active Substance: PAROXETINE HYDROCHLORIDE
  5. NEURONTIN [Concomitant]
     Active Substance: GABAPENTIN
  6. LITHIUM CARBONATE. [Concomitant]
     Active Substance: LITHIUM CARBONATE
  7. ZOLOFT [Concomitant]
     Active Substance: SERTRALINE HYDROCHLORIDE

REACTIONS (14)
  - Suicidal ideation [Unknown]
  - Affect lability [Unknown]
  - Suicidal behaviour [Unknown]
  - Intervertebral disc protrusion [Unknown]
  - Tardive dyskinesia [Unknown]
  - Depression [Unknown]
  - Seizure [Unknown]
  - Renal impairment [Unknown]
  - Encephalopathy [Unknown]
  - Mental status changes [Unknown]
  - Mental impairment [Unknown]
  - Thyroid function test abnormal [Unknown]
  - Electrolyte imbalance [Unknown]
  - Coma [Unknown]
